FAERS Safety Report 10245255 (Version 1)
Quarter: 2014Q2

REPORT INFORMATION
  Report Type: Spontaneous
  Country: AT (occurrence: AT)
  Receive Date: 20140618
  Receipt Date: 20140618
  Transmission Date: 20141212
  Serious: Yes (Other)
  Sender: FDA-Public Use
  Company Number: AT-ROCHE-1419253

PATIENT
  Age: 78 Year
  Sex: Female

DRUGS (4)
  1. BEVACIZUMAB [Suspect]
     Indication: ADENOCARCINOMA
     Route: 065
  2. ERLOTINIB [Suspect]
     Indication: ADENOCARCINOMA
     Route: 065
  3. PEMETREXED [Concomitant]
  4. CARBOPLATIN [Concomitant]

REACTIONS (4)
  - Disease progression [Unknown]
  - Acne [Unknown]
  - Infection [Unknown]
  - Proteinuria [Unknown]
